FAERS Safety Report 12442721 (Version 1)
Quarter: 2016Q2

REPORT INFORMATION
  Report Type: Spontaneous
  Country: SA (occurrence: SA)
  Receive Date: 20160607
  Receipt Date: 20160607
  Transmission Date: 20160815
  Serious: Yes (Hospitalization)
  Sender: FDA-Public Use
  Company Number: SA-JNJFOC-20160602138

PATIENT

DRUGS (4)
  1. DOXORUBICIN HYDROCHLORIDE. [Suspect]
     Active Substance: DOXORUBICIN HYDROCHLORIDE
     Indication: SARCOMATOSIS
     Route: 033
  2. CISPLATIN. [Suspect]
     Active Substance: CISPLATIN
     Indication: SARCOMATOSIS
     Route: 033
  3. MELPHALAN [Suspect]
     Active Substance: MELPHALAN
     Indication: SARCOMATOSIS
     Route: 033
  4. MITOMYCIN C [Suspect]
     Active Substance: MITOMYCIN
     Indication: SARCOMATOSIS
     Route: 033

REACTIONS (4)
  - Ureteric obstruction [Unknown]
  - Product use issue [Unknown]
  - Off label use [Unknown]
  - Acute kidney injury [Unknown]
